FAERS Safety Report 5210243-5 (Version None)
Quarter: 2006Q4

REPORT INFORMATION
  Report Type: 
  Country: None (occurrence: None)
  Receive Date: 20061103
  Receipt Date: 20060912
  Transmission Date: 20070319
  Serious: Yes (Other)
  Sender: FDA-Public Use
  Company Number: 463212

PATIENT
  Age: 77 Year
  Sex: Female

DRUGS (8)
  1. BONIVA [Suspect]
     Indication: OSTEOPOROSIS
     Dosage: 3 MG INTRAVENOUS
     Route: 042
     Dates: start: 20060830, end: 20060830
  2. ZOLOFT [Concomitant]
  3. AVAPRO [Concomitant]
  4. LASIX [Concomitant]
  5. COUMADIN [Concomitant]
  6. NEURONTIN [Concomitant]
  7. METOPROLOL TARTRATE [Concomitant]
  8. VITAMIN B12 [Concomitant]

REACTIONS (1)
  - PYREXIA [None]
